FAERS Safety Report 8189404-1 (Version None)
Quarter: 2012Q1

REPORT INFORMATION
  Report Type: 
  Country: None (occurrence: None)
  Receive Date: 20120307
  Receipt Date: 20120228
  Transmission Date: 20120608
  Serious: Yes (Other)
  Sender: FDA-Public Use
  Company Number: MX-SANOFI-AVENTIS-2012SA013536

PATIENT
  Age: 56 Year
  Sex: Female
  Weight: 75 kg

DRUGS (2)
  1. LANTUS [Suspect]
     Indication: TYPE 2 DIABETES MELLITUS
     Dosage: 35 IU IN THE MORNING AND 10 IU AT NIGHT
     Route: 058
     Dates: start: 20110601
  2. METFORMIN HCL [Suspect]
     Indication: TYPE 2 DIABETES MELLITUS
     Route: 048
     Dates: start: 20110601

REACTIONS (4)
  - HYPERGLYCAEMIA [None]
  - MEDICATION ERROR [None]
  - WEIGHT DECREASED [None]
  - INJECTION SITE PAIN [None]
